FAERS Safety Report 13681003 (Version 4)
Quarter: 2017Q4

REPORT INFORMATION
  Report Type: Spontaneous
  Country: US (occurrence: US)
  Receive Date: 20170623
  Receipt Date: 20171005
  Transmission Date: 20180320
  Serious: Yes (Life-Threatening, Hospitalization, Other)
  Sender: FDA-Public Use
  Company Number: US-LUPIN (EUROPE) LIMITED-2017-03225

PATIENT
  Age: 31 Year
  Sex: Female
  Weight: 49.43 kg

DRUGS (1)
  1. MY WAY [Suspect]
     Active Substance: LEVONORGESTREL
     Indication: CONTRACEPTION
     Dosage: 1 DF, SINGLE
     Route: 048
     Dates: start: 201702, end: 201702

REACTIONS (4)
  - Haemorrhagic anaemia [Unknown]
  - Peritoneal haemorrhage [Unknown]
  - Ectopic pregnancy under hormonal contraception [Unknown]
  - Ruptured ectopic pregnancy [Recovered/Resolved]

NARRATIVE: CASE EVENT DATE: 2017
